FAERS Safety Report 10190524 (Version 1)
Quarter: 2014Q2

REPORT INFORMATION
  Report Type: Spontaneous
  Country: GB (occurrence: GB)
  Receive Date: 20140523
  Receipt Date: 20140523
  Transmission Date: 20141212
  Serious: Yes (Other)
  Sender: FDA-Public Use
  Company Number: PHHY2014GB059015

PATIENT
  Age: 32 Year
  Sex: 0

DRUGS (1)
  1. GENTAMICIN [Suspect]

REACTIONS (1)
  - Deafness neurosensory [Recovering/Resolving]
